FAERS Safety Report 7707791 (Version 6)
Quarter: 2013Q2

REPORT INFORMATION
  Report Type: Spontaneous
  Country: FR (occurrence: FR)
  Receive Date: 20101214
  Receipt Date: 20130412
  Transmission Date: 20140414
  Serious: Yes (Hospitalization)
  Sender: FDA-Public Use
  Company Number: FR-ABBOTT-10P-056-0690437-00

PATIENT
  Age: 45 Year
  Sex: Female

DRUGS (11)
  1. LIPANTHYL [Suspect]
     Indication: HYPERLIPIDAEMIA
     Route: 048
     Dates: start: 2005, end: 2006
  2. MEDIATOR [Suspect]
     Indication: HYPERLIPIDAEMIA
     Route: 048
     Dates: start: 20040526, end: 20091212
  3. HYDROCORTISONE ROUSSEL [Suspect]
     Indication: HYPOTHYROIDISM
     Route: 048
     Dates: start: 2004, end: 2005
  4. EUTHYRAL [Suspect]
     Indication: HYPOTHYROIDISM
     Route: 048
     Dates: start: 2004, end: 2005
  5. KENZEN [Concomitant]
     Indication: PRODUCT USED FOR UNKNOWN INDICATION
     Route: 048
  6. LASILIX [Concomitant]
     Indication: PRODUCT USED FOR UNKNOWN INDICATION
     Route: 048
  7. ALDALIX [Concomitant]
     Indication: PRODUCT USED FOR UNKNOWN INDICATION
     Route: 048
  8. LEXOMIL [Concomitant]
     Indication: PRODUCT USED FOR UNKNOWN INDICATION
     Route: 048
  9. CORDARONE [Concomitant]
     Indication: PRODUCT USED FOR UNKNOWN INDICATION
     Route: 048
  10. ALDACTONE [Concomitant]
     Indication: PRODUCT USED FOR UNKNOWN INDICATION
     Route: 048
  11. PREVISCAN [Concomitant]
     Indication: PRODUCT USED FOR UNKNOWN INDICATION
     Route: 048

REACTIONS (7)
  - Cardiac valve disease [Recovered/Resolved with Sequelae]
  - Mitral valve stenosis [Recovered/Resolved with Sequelae]
  - Aortic stenosis [Recovered/Resolved]
  - Pulmonary arterial hypertension [Recovered/Resolved]
  - Mitral valve replacement [Recovered/Resolved]
  - Aortic valve replacement [Recovered/Resolved]
  - Tricuspid valve incompetence [Not Recovered/Not Resolved]
